FAERS Safety Report 5442868-6 (Version None)
Quarter: 2007Q3

REPORT INFORMATION
  Report Type: 
  Country: None (occurrence: None)
  Receive Date: 20070831
  Receipt Date: 20070831
  Transmission Date: 20080115
  Serious: Yes (Hospitalization)
  Sender: FDA-Public Use
  Company Number: None

PATIENT
  Age: 43 Year
  Sex: Female
  Weight: 54.4316 kg

DRUGS (2)
  1. DOCETAXEL [Suspect]
     Indication: BREAST CANCER
     Dosage: 75MG/M2 Q 3WK X 4
  2. CAPECITABINE [Suspect]
     Indication: BREAST CANCER
     Dosage: 1000 MG/M2 D1-14 Q3WK X 4

REACTIONS (1)
  - FEBRILE NEUTROPENIA [None]
